FAERS Safety Report 13406564 (Version 3)
Quarter: 2017Q2

REPORT INFORMATION
  Report Type: Spontaneous
  Country: FR (occurrence: FR)
  Receive Date: 20170405
  Receipt Date: 20170414
  Transmission Date: 20170830
  Serious: Yes (Other)
  Sender: FDA-Public Use
  Company Number: FR-ASTRAZENECA-2017SE33145

PATIENT
  Age: 23613 Day
  Sex: Female

DRUGS (13)
  1. XEROQUEL [Suspect]
     Active Substance: QUETIAPINE FUMARATE
     Route: 048
  2. FUMAFER [Concomitant]
     Active Substance: FERROUS FUMARATE
  3. HEPT A MYL [Concomitant]
     Active Substance: HEPTAMINOL HYDROCHLORIDE
  4. XEROQUEL [Suspect]
     Active Substance: QUETIAPINE FUMARATE
     Dosage: 4 DF OF 300 MG
     Route: 048
  5. XEROQUEL [Suspect]
     Active Substance: QUETIAPINE FUMARATE
     Route: 048
     Dates: start: 20170321
  6. CYMBALTA [Concomitant]
     Active Substance: DULOXETINE HYDROCHLORIDE
  7. INIPOMP [Concomitant]
     Active Substance: PANTOPRAZOLE SODIUM
  8. MOTILIUM [Concomitant]
     Active Substance: DOMPERIDONE
  9. TRAMADOL. [Concomitant]
     Active Substance: TRAMADOL
     Dosage: 10.0MG UNKNOWN
  10. TAHOR [Concomitant]
     Active Substance: ATORVASTATIN CALCIUM
     Dosage: 10.0MG UNKNOWN
  11. LIORESAL [Concomitant]
     Active Substance: BACLOFEN
     Dosage: 10.0MG UNKNOWN
  12. LYSANXIA [Concomitant]
     Active Substance: PRAZEPAM
  13. IMOVANE [Concomitant]
     Active Substance: ZOPICLONE

REACTIONS (10)
  - Asthenia [Recovered/Resolved]
  - Dysarthria [Recovered/Resolved]
  - Overdose [Recovered/Resolved]
  - Confusional state [Recovered/Resolved]
  - Hypotension [Recovered/Resolved]
  - Drug dispensing error [Recovered/Resolved]
  - Drug administration error [Recovered/Resolved]
  - Oxygen saturation decreased [Recovered/Resolved]
  - Somnolence [Recovered/Resolved]
  - Product preparation error [Recovered/Resolved]

NARRATIVE: CASE EVENT DATE: 20170318
